FAERS Safety Report 5004824-1 (Version None)
Quarter: 2006Q2

REPORT INFORMATION
  Report Type: 
  Country: None (occurrence: None)
  Receive Date: 20060517
  Receipt Date: 20050405
  Transmission Date: 20061013
  Serious: Yes (Disabling, Other)
  Sender: FDA-Public Use
  Company Number: US-MERCK-0504USA00665

PATIENT
  Age: 29 Year
  Sex: Female
  Weight: 81 kg

DRUGS (5)
  1. VIOXX [Suspect]
     Indication: RHEUMATOID ARTHRITIS
     Route: 048
     Dates: start: 20000601, end: 20020701
  2. PAXIL [Concomitant]
     Indication: DEPRESSION
     Route: 065
     Dates: start: 19960101
  3. GUAIFENESIN [Concomitant]
     Indication: SINUS DISORDER
     Route: 065
  4. LORTAB [Concomitant]
     Route: 065
     Dates: start: 20000101
  5. FOSAMAX [Concomitant]
     Route: 065
     Dates: start: 20000101

REACTIONS (11)
  - ANXIETY [None]
  - ARTHRITIS [None]
  - CARDIAC VALVE DISEASE [None]
  - DEPRESSION [None]
  - FACE INJURY [None]
  - FIBROMYALGIA [None]
  - HEART RATE IRREGULAR [None]
  - INJURY [None]
  - INSOMNIA [None]
  - LIMB INJURY [None]
  - MYOCARDIAL INFARCTION [None]
